FAERS Safety Report 4711402-8 (Version None)
Quarter: 2005Q3

REPORT INFORMATION
  Report Type: 
  Country: None (occurrence: None)
  Receive Date: 20050711
  Receipt Date: 20050613
  Transmission Date: 20060218
  Serious: Yes (Hospitalization)
  Sender: FDA-Public Use
  Company Number: FI-MERCK-0506FIN00003

PATIENT
  Age: 50 Year
  Sex: Female

DRUGS (3)
  1. ZETIA [Suspect]
     Route: 048
     Dates: start: 20050413, end: 20050418
  2. ATORVASTATIN CALCIUM [Concomitant]
     Route: 048
     Dates: end: 20050413
  3. CYCLOSPORINE [Concomitant]
     Indication: RENAL TRANSPLANT
     Route: 048
     Dates: start: 19980401

REACTIONS (5)
  - ABDOMINAL PAIN [None]
  - BLOOD CREATININE INCREASED [None]
  - HEADACHE [None]
  - TRANSPLANT REJECTION [None]
  - VOMITING [None]
